FAERS Safety Report 7399601-0 (Version None)
Quarter: 2011Q2

REPORT INFORMATION
  Report Type: 
  Country: None (occurrence: None)
  Receive Date: 20110407
  Receipt Date: 20110331
  Transmission Date: 20111010
  Serious: Yes (Disabling)
  Sender: FDA-Public Use
  Company Number: AU-PFIZER INC-2011048673

PATIENT
  Age: 61 Year
  Sex: Female

DRUGS (3)
  1. VFEND [Suspect]
     Indication: BRONCHOPULMONARY ASPERGILLOSIS
  2. VFEND [Suspect]
     Indication: ASPERGILLOSIS
     Dosage: 300 MG, 2X/DAY
     Route: 048
     Dates: start: 20101021, end: 20110120
  3. INTRAGAM [Concomitant]

REACTIONS (5)
  - SENSORY LEVEL ABNORMAL [None]
  - NEUROPATHY PERIPHERAL [None]
  - PARAESTHESIA [None]
  - PHOTOPSIA [None]
  - NERVE CONDUCTION STUDIES ABNORMAL [None]
